FAERS Safety Report 8178155-5 (Version None)
Quarter: 2012Q1

REPORT INFORMATION
  Report Type: 
  Country: None (occurrence: None)
  Receive Date: 20120301
  Receipt Date: 20120227
  Transmission Date: 20120608
  Serious: Yes (Death)
  Sender: FDA-Public Use
  Company Number: CHPA2012US003819

PATIENT
  Age: 51 Year
  Sex: Male

DRUGS (3)
  1. DIPHENHYDRAMINE HCL [Suspect]
     Dosage: UNK, UNK
     Route: 048
  2. METHADON HCL TAB [Suspect]
     Dosage: UNK, UNK
     Route: 048
  3. ALPRAZOLAM [Suspect]
     Dosage: UNK, UNK
     Route: 048

REACTIONS (1)
  - DRUG ABUSE [None]
